FAERS Safety Report 21647935 (Version 1)
Quarter: 2022Q4

REPORT INFORMATION
  Report Type: Spontaneous
  Country: FR (occurrence: FR)
  Receive Date: 20221128
  Receipt Date: 20221128
  Transmission Date: 20230112
  Serious: Yes (Other)
  Sender: FDA-Public Use
  Company Number: FR-SA-SAC20221124000262

PATIENT
  Age: 35 Year
  Sex: Male

DRUGS (4)
  1. PRIMAQUINE PHOSPHATE [Suspect]
     Active Substance: PRIMAQUINE PHOSPHATE
     Dosage: 30 MG
     Route: 065
     Dates: start: 20190110, end: 20190123
  2. PAROXETINE HYDROCHLORIDE [Suspect]
     Active Substance: PAROXETINE HYDROCHLORIDE
     Dosage: 20 MG, QD
     Dates: start: 2018
  3. CHLOROQUINE [Suspect]
     Active Substance: CHLOROQUINE
     Dosage: 700 MG
     Dates: start: 20181219
  4. CHLOROQUINE [Suspect]
     Active Substance: CHLOROQUINE
     Dosage: 300 MG
     Dates: start: 20181221

REACTIONS (8)
  - Plasmodium vivax infection [Recovering/Resolving]
  - Pyrexia [Recovering/Resolving]
  - Myalgia [Recovering/Resolving]
  - Headache [Recovering/Resolving]
  - Dry skin [Recovering/Resolving]
  - Lymphopenia [Recovering/Resolving]
  - Drug interaction [Unknown]
  - Drug ineffective [Unknown]

NARRATIVE: CASE EVENT DATE: 20190201
